FAERS Safety Report 20634787 (Version 1)
Quarter: 2022Q1

REPORT INFORMATION
  Report Type: Spontaneous
  Country: JP (occurrence: JP)
  Receive Date: 20220325
  Receipt Date: 20220325
  Transmission Date: 20220423
  Serious: Yes (Other)
  Sender: FDA-Public Use
  Company Number: JP-SA-2022SA095423

PATIENT
  Sex: Male

DRUGS (14)
  1. DOCETAXEL [Suspect]
     Active Substance: DOCETAXEL
     Indication: Prostate cancer
     Dosage: 120 MG
     Route: 041
     Dates: start: 20140130, end: 20140130
  2. DOCETAXEL [Suspect]
     Active Substance: DOCETAXEL
     Dosage: 108 MG
     Route: 041
     Dates: start: 20140129, end: 20140129
  3. DOCETAXEL [Suspect]
     Active Substance: DOCETAXEL
     Dosage: DECREASED TO 100 MG
     Route: 041
     Dates: start: 20140226, end: 20140226
  4. DOCETAXEL [Suspect]
     Active Substance: DOCETAXEL
     Dosage: DECREASED TO 80 MG
     Route: 041
     Dates: start: 20140319, end: 20140319
  5. DOCETAXEL [Suspect]
     Active Substance: DOCETAXEL
     Dosage: 80 MG
     Route: 041
     Dates: start: 20140409, end: 20140409
  6. DOCETAXEL [Suspect]
     Active Substance: DOCETAXEL
     Dosage: 80 MG
     Route: 041
     Dates: start: 20140430, end: 20140430
  7. DOCETAXEL [Suspect]
     Active Substance: DOCETAXEL
     Dosage: 80 MG
     Route: 041
     Dates: start: 20140515, end: 20140515
  8. ETHINYL ESTRADIOL [Concomitant]
     Active Substance: ETHINYL ESTRADIOL
     Indication: Prostate cancer
     Dosage: UNK
     Route: 048
  9. ETHINYL ESTRADIOL [Concomitant]
     Active Substance: ETHINYL ESTRADIOL
     Dosage: UNK
     Route: 048
     Dates: start: 20140510
  10. ETHINYL ESTRADIOL [Concomitant]
     Active Substance: ETHINYL ESTRADIOL
     Dosage: DOSE DECREASED
     Route: 048
     Dates: start: 20140716
  11. FLUTAMIDE [Concomitant]
     Active Substance: FLUTAMIDE
     Indication: Prostate cancer
     Dosage: UNK
     Route: 048
  12. TESTOSTERONE [Concomitant]
     Active Substance: TESTOSTERONE
     Indication: Product used for unknown indication
     Dosage: UNK
     Route: 065
     Dates: start: 20140123
  13. LEUPLIN [Concomitant]
     Active Substance: LEUPROLIDE ACETATE
     Indication: Prostate cancer
     Dosage: UNK
     Route: 058
     Dates: start: 20140226
  14. AMLODIPINE BESYLATE [Concomitant]
     Active Substance: AMLODIPINE BESYLATE
     Indication: Product used for unknown indication
     Dosage: UNK
     Route: 065
     Dates: start: 20140203

REACTIONS (8)
  - Leukopenia [Unknown]
  - Granulocytopenia [Unknown]
  - Monocyte percentage increased [Unknown]
  - Hyperlipidaemia [Recovered/Resolved]
  - Hepatic cyst [Unknown]
  - Alopecia [Recovering/Resolving]
  - Urinary tract infection [Unknown]
  - Cystitis [Unknown]

NARRATIVE: CASE EVENT DATE: 20140203
